FAERS Safety Report 4922275-2 (Version None)
Quarter: 2006Q1

REPORT INFORMATION
  Report Type: 
  Country: None (occurrence: None)
  Receive Date: 20060224
  Receipt Date: 20050609
  Transmission Date: 20060701
  Serious: Yes (Hospitalization, Disabling)
  Sender: FDA-Public Use
  Company Number: US-MERCK-0506USA01555

PATIENT
  Age: 55 Year
  Sex: Male
  Weight: 82 kg

DRUGS (1)
  1. VIOXX [Suspect]
     Indication: ROTATOR CUFF SYNDROME
     Route: 048
     Dates: start: 20010601, end: 20010828

REACTIONS (4)
  - MYOCARDIAL INFARCTION [None]
  - OESOPHAGEAL CARCINOMA [None]
  - POLYTRAUMATISM [None]
  - ROTATOR CUFF SYNDROME [None]
